FAERS Safety Report 25047122 (Version 1)
Quarter: 2025Q1

REPORT INFORMATION
  Report Type: Spontaneous
  Country: JP (occurrence: JP)
  Receive Date: 20250306
  Receipt Date: 20250306
  Transmission Date: 20250408
  Serious: Yes (Other)
  Sender: NEUROCRINE BIOSCIENCES
  Company Number: JP-MTPC-MTPC2025-0002442

PATIENT
  Age: 63 Year
  Sex: Female

DRUGS (8)
  1. VALBENAZINE [Suspect]
     Active Substance: VALBENAZINE
     Indication: Tardive dyskinesia
     Route: 048
     Dates: start: 20250116, end: 20250117
  2. VALBENAZINE [Suspect]
     Active Substance: VALBENAZINE
     Route: 048
     Dates: start: 20241219, end: 20250115
  3. VALBENAZINE [Suspect]
     Active Substance: VALBENAZINE
     Route: 048
     Dates: start: 20241024, end: 20241218
  4. PYRETHIA [Concomitant]
     Active Substance: PROMETHAZINE HYDROCHLORIDE
     Route: 065
  5. RISPERDAL [Concomitant]
     Active Substance: RISPERIDONE
     Route: 048
  6. DIAZEPAM [Concomitant]
     Active Substance: DIAZEPAM
     Route: 065
  7. NITRAZEPAM [Concomitant]
     Active Substance: NITRAZEPAM
     Route: 065
  8. TEPRENONE [Concomitant]
     Active Substance: TEPRENONE
     Route: 048

REACTIONS (3)
  - Mobility decreased [Recovering/Resolving]
  - Myoclonus [Recovering/Resolving]
  - Salivary hypersecretion [Recovered/Resolved]

NARRATIVE: CASE EVENT DATE: 20241220
